FAERS Safety Report 8810059 (Version 1)
Quarter: 2012Q4

REPORT INFORMATION
  Report Type: 
  Country: IT (occurrence: IT)
  Receive Date: 20120926
  Receipt Date: 20120926
  Transmission Date: 20130627
  Serious: Yes (Other)
  Sender: FDA-Public Use
  Company Number: IT-GLAXOSMITHKLINE-B0678961A

PATIENT
  Age: 62 Year
  Sex: Female

DRUGS (2)
  1. TYVERB [Suspect]
     Indication: BREAST CANCER METASTATIC
     Dosage: 1250MG Per day
     Route: 048
     Dates: start: 20100719, end: 20100830
  2. XELODA [Concomitant]
     Dosage: 2000MG Per day
     Route: 048
     Dates: start: 20100719, end: 20100826

REACTIONS (4)
  - Skin toxicity [Recovered/Resolved]
  - Haemorrhage [Recovered/Resolved]
  - Ulcer [Recovered/Resolved]
  - Granuloma [Recovered/Resolved]
